FAERS Safety Report 9656119 (Version 3)
Quarter: 2013Q4

REPORT INFORMATION
  Report Type: Spontaneous
  Country: GB (occurrence: GB)
  Receive Date: 20131030
  Receipt Date: 20131216
  Transmission Date: 20140711
  Serious: Yes (Death)
  Sender: FDA-Public Use
  Company Number: GB-JNJFOC-20131015434

PATIENT
  Age: 45 Year
  Sex: Male

DRUGS (5)
  1. XEPLION [Suspect]
     Indication: BIPOLAR DISORDER
     Route: 030
     Dates: end: 20130904
  2. XEPLION [Suspect]
     Indication: BIPOLAR DISORDER
     Route: 030
     Dates: start: 20130722
  3. XEPLION [Suspect]
     Indication: BIPOLAR DISORDER
     Route: 030
     Dates: start: 20130613
  4. XEPLION [Suspect]
     Indication: BIPOLAR DISORDER
     Route: 030
     Dates: start: 20130828, end: 20130828
  5. ZOPLICONE [Concomitant]
     Route: 065

REACTIONS (4)
  - Completed suicide [Fatal]
  - Injury [Fatal]
  - Anxiety [Unknown]
  - Laceration [Fatal]
